FAERS Safety Report 21720778 (Version 1)
Quarter: 2022Q4

REPORT INFORMATION
  Report Type: Report from Study
  Country: US (occurrence: US)
  Receive Date: 20221213
  Receipt Date: 20221213
  Transmission Date: 20230113
  Serious: No
  Sender: FDA-Public Use
  Company Number: US-ABBVIE-4195115

PATIENT
  Age: 70 Year
  Sex: Female

DRUGS (2)
  1. HUMIRA [Suspect]
     Active Substance: ADALIMUMAB
     Indication: Psoriatic arthropathy
     Route: 058
  2. HUMIRA [Suspect]
     Active Substance: ADALIMUMAB
     Indication: Psoriasis
     Route: 058

REACTIONS (6)
  - Epistaxis [Unknown]
  - Pruritus [Not Recovered/Not Resolved]
  - COVID-19 [Recovered/Resolved]
  - Pain in extremity [Not Recovered/Not Resolved]
  - Therapeutic response shortened [Unknown]
  - Arthralgia [Unknown]

NARRATIVE: CASE EVENT DATE: 20220701
